FAERS Safety Report 5298427-1 (Version None)
Quarter: 2007Q2

REPORT INFORMATION
  Report Type: 
  Country: None (occurrence: None)
  Receive Date: 20070416
  Receipt Date: 20070410
  Transmission Date: 20071010
  Serious: Yes (Other)
  Sender: FDA-Public Use
  Company Number: ES-PFIZER INC-2007029043

PATIENT

DRUGS (1)
  1. CHAMPIX [Suspect]
     Dates: start: 20070101, end: 20070101

REACTIONS (1)
  - HAEMOPTYSIS [None]
